FAERS Safety Report 9705429 (Version 1)
Quarter: 2013Q4

REPORT INFORMATION
  Report Type: Spontaneous
  Country: CA (occurrence: CA)
  Receive Date: 20131122
  Receipt Date: 20131122
  Transmission Date: 20140711
  Serious: Yes (Hospitalization)
  Sender: FDA-Public Use
  Company Number: CA-LUNDBECK-DKLU1095520

PATIENT
  Age: 52 Year
  Sex: Male

DRUGS (6)
  1. ONFI [Suspect]
     Indication: POST-ANOXIC MYOCLONUS
     Dates: start: 201105, end: 20120203
  2. GRANISETRON [Suspect]
     Indication: POST-ANOXIC MYOCLONUS
     Dates: start: 201204
  3. LEVETIRACETAM [Suspect]
     Indication: POST-ANOXIC MYOCLONUS
     Dates: start: 201105, end: 20120203
  4. LEVETIRACETAM [Suspect]
     Dates: start: 2012, end: 2012
  5. VALPROIC ACID [Suspect]
     Indication: POST-ANOXIC MYOCLONUS
     Dates: start: 201105, end: 2012
  6. OXITRIPTAN [Concomitant]
     Indication: POST-ANOXIC MYOCLONUS
     Dates: start: 20120404

REACTIONS (2)
  - Myoclonus [Recovering/Resolving]
  - Depressed level of consciousness [Recovering/Resolving]
